FAERS Safety Report 11835800 (Version 6)
Quarter: 2016Q1

REPORT INFORMATION
  Report Type: Spontaneous
  Country: GB (occurrence: GB)
  Receive Date: 20151215
  Receipt Date: 20160219
  Transmission Date: 20160525
  Serious: Yes (Other)
  Sender: FDA-Public Use
  Company Number: GB-AMGEN-GBRSP2015127320

PATIENT
  Age: 33 Year
  Sex: Female

DRUGS (1)
  1. ENBREL [Suspect]
     Active Substance: ETANERCEPT
     Indication: RHEUMATOID ARTHRITIS
     Dosage: 50 MG, WEEKLY
     Route: 058
     Dates: start: 20151112

REACTIONS (11)
  - Headache [Recovered/Resolved]
  - Condition aggravated [Unknown]
  - Nasopharyngitis [Recovered/Resolved]
  - Drug ineffective [Unknown]
  - Oral pain [Recovering/Resolving]
  - Arthralgia [Unknown]
  - Urinary tract infection [Recovered/Resolved]
  - Influenza [Recovered/Resolved]
  - White blood cell count increased [Unknown]
  - Rheumatoid arthritis [Unknown]
  - Gingival pain [Recovering/Resolving]

NARRATIVE: CASE EVENT DATE: 201511
